FAERS Safety Report 8098648-9 (Version None)
Quarter: 2012Q1

REPORT INFORMATION
  Report Type: 
  Country: None (occurrence: None)
  Receive Date: 20120129
  Receipt Date: 20111020
  Transmission Date: 20120608
  Serious: No
  Sender: FDA-Public Use
  Company Number: US-ABBOTT-11P-163-0867720-00

PATIENT
  Sex: Female

DRUGS (4)
  1. SIMVASTATIN [Concomitant]
     Indication: BLOOD CHOLESTEROL INCREASED
  2. HUMIRA [Suspect]
     Indication: PSORIATIC ARTHROPATHY
  3. HUMIRA [Suspect]
     Indication: PSORIASIS
     Dates: start: 20101201, end: 20110601
  4. UNKNOWN BLOOD PRESSURE [Concomitant]
     Indication: HYPERTENSION

REACTIONS (3)
  - PSORIASIS [None]
  - ERYTHEMA [None]
  - DRUG INEFFECTIVE [None]
